FAERS Safety Report 21903723 (Version 2)
Quarter: 2023Q2

REPORT INFORMATION
  Report Type: Spontaneous
  Country: US (occurrence: US)
  Receive Date: 20230124
  Receipt Date: 20230417
  Transmission Date: 20230721
  Serious: No
  Sender: FDA-Public Use
  Company Number: US-BIOVITRUM-2023US01110

PATIENT
  Age: 3 Month

DRUGS (5)
  1. SYNAGIS [Suspect]
     Active Substance: PALIVIZUMAB
     Indication: Premature baby
  2. SYNAGIS [Suspect]
     Active Substance: PALIVIZUMAB
     Dosage: 0.41MG
     Dates: start: 20221206
  3. LACTOBACILLUS ACIDOPHILUS [Concomitant]
     Active Substance: LACTOBACILLUS ACIDOPHILUS
     Indication: Product used for unknown indication
  4. simethicone drops [Concomitant]
     Indication: Product used for unknown indication
     Dosage: DROPS
  5. poly vi sol with iron [Concomitant]
     Indication: Product used for unknown indication

REACTIONS (3)
  - Wheezing [Unknown]
  - Irritability [Unknown]
  - Crying [Unknown]
